FAERS Safety Report 6161075-5 (Version None)
Quarter: 2009Q2

REPORT INFORMATION
  Report Type: 
  Country: None (occurrence: None)
  Receive Date: 20090420
  Receipt Date: 20090408
  Transmission Date: 20091009
  Serious: Yes (Disabling)
  Sender: FDA-Public Use
  Company Number: GB-PFIZER INC-2009194791

PATIENT

DRUGS (4)
  1. DOXYCYCLINE HYCLATE [Suspect]
     Indication: SINUSITIS
     Dosage: 100 MG, UNK
     Route: 048
     Dates: start: 20090113, end: 20090116
  2. BECLOMETASONE [Concomitant]
     Indication: ASTHMA
     Dosage: 2 DOSES, 2X/DAY
     Route: 055
  3. PARACETAMOL [Concomitant]
     Indication: OSTEOARTHRITIS
     Dosage: 1 G, UNK
     Route: 048
  4. SALBUTAMOL [Concomitant]
     Dosage: 2 DOSES, 4X/DAY
     Route: 055

REACTIONS (1)
  - JAUNDICE [None]
